FAERS Safety Report 8616485-0 (Version None)
Quarter: 2012Q3

REPORT INFORMATION
  Report Type: 
  Country: None (occurrence: None)
  Receive Date: 20120823
  Receipt Date: 20120801
  Transmission Date: 20120928
  Serious: No
  Sender: FDA-Public Use
  Company Number: US-009507513-1208USA001199

PATIENT

DRUGS (1)
  1. PROPECIA [Suspect]
     Indication: ALOPECIA
     Dosage: 1 DF, QD
     Route: 048
     Dates: start: 20101228, end: 20120301

REACTIONS (2)
  - PEYRONIE'S DISEASE [None]
  - LIBIDO DECREASED [None]
